FAERS Safety Report 5208623-7 (Version None)
Quarter: 2007Q1

REPORT INFORMATION
  Report Type: 
  Country: None (occurrence: None)
  Receive Date: 20070116
  Receipt Date: 20070103
  Transmission Date: 20070707
  Serious: Yes (Other)
  Sender: FDA-Public Use
  Company Number: PHBS2007BR00610

PATIENT
  Age: 12 Year
  Sex: Male
  Weight: 53 kg

DRUGS (2)
  1. TRILEPTAL [Suspect]
     Indication: CEREBRAL PALSY
     Dosage: 600 MG MORNING + 900 MG EVENING
     Route: 048
     Dates: start: 20061226
  2. GARDENAL [Concomitant]
     Indication: CONVULSION
     Dosage: 100 DRP, QD
     Route: 048
     Dates: start: 20050101

REACTIONS (4)
  - CONVULSION [None]
  - DYSPHAGIA [None]
  - EYE ROLLING [None]
  - ORAL MUCOSAL DISCOLOURATION [None]
